FAERS Safety Report 22012969 (Version 1)
Quarter: 2023Q1

REPORT INFORMATION
  Report Type: Spontaneous
  Country: MY (occurrence: MY)
  Receive Date: 20230220
  Receipt Date: 20230220
  Transmission Date: 20230418
  Serious: Yes (Death, Life-Threatening, Other)
  Sender: FDA-Public Use
  Company Number: MY-FreseniusKabi-FK202302173

PATIENT
  Age: 45 Year
  Sex: Female

DRUGS (6)
  1. DOXORUBICIN [Suspect]
     Active Substance: DOXORUBICIN
     Indication: Ewing^s sarcoma
     Dosage: SIX CYCLES OF VIDE
  2. ETOPOSIDE [Suspect]
     Active Substance: ETOPOSIDE
     Indication: Ewing^s sarcoma
     Dosage: SIX CYCLES OF VIDE
  3. ETOPOSIDE [Suspect]
     Active Substance: ETOPOSIDE
     Dosage: ICE REGIME AS SECOND-LINE CHEMOTHERAPY
  4. CARBOPLATIN [Suspect]
     Active Substance: CARBOPLATIN
     Indication: Ewing^s sarcoma
     Dosage: ICE REGIME AS SECOND-LINE CHEMOTHERAPY
  5. IFOSFAMIDE [Suspect]
     Active Substance: IFOSFAMIDE
     Indication: Ewing^s sarcoma
     Dosage: SIX CYCLES OF VIDE
  6. VINCRISTINE [Suspect]
     Active Substance: VINCRISTINE
     Indication: Ewing^s sarcoma
     Dosage: SIX CYCLES OF VIDE

REACTIONS (3)
  - Metabolic acidosis [Fatal]
  - Multiple organ dysfunction syndrome [Fatal]
  - Neutropenic sepsis [Fatal]
